FAERS Safety Report 24792327 (Version 1)
Quarter: 2024Q4

REPORT INFORMATION
  Report Type: Spontaneous
  Country: US (occurrence: US)
  Receive Date: 20241231
  Receipt Date: 20241231
  Transmission Date: 20250115
  Serious: Yes (Life-Threatening, Hospitalization, Other)
  Sender: LUPIN
  Company Number: US-LUPIN PHARMACEUTICALS INC.-2024-12494

PATIENT
  Age: 55 Year
  Sex: Female

DRUGS (1)
  1. LEVOTHYROXINE [Suspect]
     Active Substance: LEVOTHYROXINE
     Indication: Product used for unknown indication
     Dosage: 8 MG (UNK (TOOK BOTTLE OF LEVOTHYROXINE SODIUM [LEVOTHYROXINE], WHICH CONTAINED A 3 MONTHS SUPPLY))
     Route: 065

REACTIONS (5)
  - Cardiac arrest [Unknown]
  - Ventricular fibrillation [Unknown]
  - Thyrotoxic crisis [Unknown]
  - Hyperthyroidism [Unknown]
  - Intentional overdose [Unknown]
